FAERS Safety Report 21722015 (Version 1)
Quarter: 2022Q4

REPORT INFORMATION
  Report Type: Spontaneous
  Country: AR (occurrence: AR)
  Receive Date: 20221213
  Receipt Date: 20221213
  Transmission Date: 20230113
  Serious: Yes (Other)
  Sender: FDA-Public Use
  Company Number: AR-MEDEXUS PHARMA, INC.-2022MED00464

PATIENT
  Age: 13 Year
  Sex: Male

DRUGS (6)
  1. METHOTREXATE [Suspect]
     Active Substance: METHOTREXATE
     Indication: B-cell lymphoma
     Dosage: ^RAA BLOCK^; AGE-APPROPRIATE DOSE
     Route: 037
  2. METHOTREXATE [Suspect]
     Active Substance: METHOTREXATE
     Dosage: 2 G/M2 VIA INFUSION OVER 4 HOURS
     Route: 042
  3. METHOTREXATE [Suspect]
     Active Substance: METHOTREXATE
     Dosage: ^RBB BLOCK^
     Route: 037
  4. METHOTREXATE [Suspect]
     Active Substance: METHOTREXATE
     Dosage: 2 G/M2 VIA INFUSION OVER 4 HOURS
     Route: 042
  5. LEUCOVORIN [Concomitant]
     Active Substance: LEUCOVORIN
     Indication: B-cell lymphoma
     Dosage: 3 DOSES AT 15 MG/M2
     Route: 065
  6. LEUCOVORIN [Concomitant]
     Active Substance: LEUCOVORIN
     Dosage: 3 DOSES AT 15 MG/M2
     Route: 065

REACTIONS (3)
  - White matter lesion [Recovered/Resolved]
  - Vasogenic cerebral oedema [Recovered/Resolved]
  - Neurotoxicity [Recovered/Resolved]
